FAERS Safety Report 21207444 (Version 1)
Quarter: 2022Q3

REPORT INFORMATION
  Report Type: Spontaneous
  Country: CA (occurrence: CA)
  Receive Date: 20220812
  Receipt Date: 20220812
  Transmission Date: 20221027
  Serious: Yes (Hospitalization)
  Sender: FDA-Public Use
  Company Number: CA-BAYER-2022A109815

PATIENT
  Age: 53 Year
  Sex: Female

DRUGS (13)
  1. ESTRADIOL HEMIHYDRATE [Suspect]
     Active Substance: ESTRADIOL HEMIHYDRATE
     Dosage: UNK UNK, Q2MON
     Route: 062
     Dates: end: 200903
  2. PROGESTERONE [Suspect]
     Active Substance: PROGESTERONE
     Dosage: 100 MG, UNK
     Dates: end: 200903
  3. LORAZEPAM [Suspect]
     Active Substance: LORAZEPAM
     Dosage: 1 MG, QD
     Dates: end: 200903
  4. BUDESONIDE\FORMOTEROL FUMARATE [Suspect]
     Active Substance: BUDESONIDE\FORMOTEROL FUMARATE
     Dosage: 1 DF, BID
  5. VARENICLINE [Suspect]
     Active Substance: VARENICLINE
     Dosage: 0.5 MG, QD
  6. VENLAFAXINE [Suspect]
     Active Substance: VENLAFAXINE HYDROCHLORIDE
     Dosage: 150 MG, UNK
  7. PROBIOTICS NOS [Suspect]
     Active Substance: PROBIOTICS NOS
     Dosage: 1 DF, TID
     Route: 048
  8. LINOLEIC ACID, CONJUGATED [Suspect]
     Active Substance: LINOLEIC ACID, CONJUGATED
     Dosage: 1 DF, TID
     Route: 048
  9. SOMATROPIN [Suspect]
     Active Substance: SOMATROPIN
  10. DIMETHYL SULFONE [Suspect]
     Active Substance: DIMETHYL SULFONE
     Dosage: 1000 MG, TID
  11. VITAMINS NOS [Suspect]
     Active Substance: VITAMINS
     Dosage: 1 DF, BID
     Route: 048
  12. FISH OIL [Suspect]
     Active Substance: FISH OIL
     Dosage: 1 DF, BID
     Route: 048
  13. VITAMIN D NOS [Suspect]
     Active Substance: VITAMIN D NOS
     Dosage: 1000 IU, QD
     Route: 048

REACTIONS (4)
  - Drug-induced liver injury [None]
  - Hepatic cirrhosis [None]
  - Hepatic encephalopathy [None]
  - Hepatic necrosis [None]
